FAERS Safety Report 14667103 (Version 2)
Quarter: 2018Q2

REPORT INFORMATION
  Report Type: Spontaneous
  Country: US (occurrence: US)
  Receive Date: 20180322
  Receipt Date: 20180420
  Transmission Date: 20180711
  Serious: No
  Sender: FDA-Public Use
  Company Number: US-JNJFOC-20180311042

PATIENT
  Sex: Female

DRUGS (2)
  1. ZYRTEC [Suspect]
     Active Substance: CETIRIZINE HYDROCHLORIDE
     Indication: PRODUCT USED FOR UNKNOWN INDICATION
     Route: 065
  2. ZYRTEC [Suspect]
     Active Substance: CETIRIZINE HYDROCHLORIDE
     Route: 065

REACTIONS (2)
  - Product label issue [Unknown]
  - Pruritus [Unknown]
